FAERS Safety Report 6635481-6 (Version None)
Quarter: 2010Q1

REPORT INFORMATION
  Report Type: 
  Country: None (occurrence: None)
  Receive Date: 20100315
  Receipt Date: 20090615
  Transmission Date: 20100710
  Serious: No
  Sender: FDA-Public Use
  Company Number: US-ABBOTT-09P-163-0580022-00

PATIENT
  Age: 45 Year
  Sex: Male

DRUGS (7)
  1. DEPAKOTE [Suspect]
     Indication: BIPOLAR DISORDER
  2. DEPAKOTE [Suspect]
     Indication: SCHIZOPHRENIA
  3. DEPAKOTE [Suspect]
     Indication: DELUSION OF GRANDEUR
  4. THYROID MEDICATION [Concomitant]
     Indication: THYROID DISORDER
  5. LAMICTAL CD [Concomitant]
     Indication: DRUG USE FOR UNKNOWN INDICATION
  6. ABILIFY [Concomitant]
     Indication: DRUG USE FOR UNKNOWN INDICATION
  7. UNKNOWN BP MEDICATION [Concomitant]
     Indication: BLOOD PRESSURE

REACTIONS (2)
  - AMMONIA INCREASED [None]
  - LIVER FUNCTION TEST ABNORMAL [None]
